FAERS Safety Report 24858500 (Version 1)
Quarter: 2025Q1

REPORT INFORMATION
  Report Type: Report from Study
  Country: US (occurrence: US)
  Receive Date: 20250117
  Receipt Date: 20250117
  Transmission Date: 20250409
  Serious: No
  Sender: ACCORD
  Company Number: US-Accord-454364

PATIENT
  Sex: Male
  Weight: 75.75 kg

DRUGS (1)
  1. CLOZAPINE [Suspect]
     Active Substance: CLOZAPINE
     Indication: Mental disorder
     Route: 048

REACTIONS (2)
  - Refusal of treatment by patient [Unknown]
  - Investigation noncompliance [Unknown]
